FAERS Safety Report 8262865-5 (Version None)
Quarter: 2012Q2

REPORT INFORMATION
  Report Type: 
  Country: None (occurrence: None)
  Receive Date: 20120405
  Receipt Date: 20120330
  Transmission Date: 20120825
  Serious: Yes (Other)
  Sender: FDA-Public Use
  Company Number: US-GLAXOSMITHKLINE-A0964796A

PATIENT
  Age: 13 Year
  Sex: Male

DRUGS (2)
  1. UNKNOWN [Concomitant]
  2. VENTOLIN [Suspect]
     Indication: ASTHMA
     Dosage: 3PUFF AS REQUIRED
     Route: 055

REACTIONS (4)
  - PRODUCT QUALITY ISSUE [None]
  - ASTHMA [None]
  - EXPIRED DRUG ADMINISTERED [None]
  - DRUG ADMINISTRATION ERROR [None]
